FAERS Safety Report 6277538-8 (Version None)
Quarter: 2009Q3

REPORT INFORMATION
  Report Type: 
  Country: None (occurrence: None)
  Receive Date: 20090722
  Receipt Date: 20090710
  Transmission Date: 20100115
  Serious: Yes (Hospitalization)
  Sender: FDA-Public Use
  Company Number: GB-PFIZER INC-2009230627

PATIENT
  Age: 60 Year

DRUGS (4)
  1. SOMATROPIN [Suspect]
     Indication: GROWTH HORMONE DEFICIENCY
     Dosage: 0.4 MG, 1X/DAY
     Route: 058
     Dates: start: 19980101
  2. METFORMIN HCL [Suspect]
     Dosage: 500 MG, 2X/DAY
     Route: 048
     Dates: start: 20020901
  3. LEVOTHYROXINE SODIUM [Concomitant]
     Dosage: 100 UG, 1X/DAY
     Route: 048
     Dates: start: 19890101
  4. HYDROCORTISONE [Concomitant]
     Dosage: 10 MG, 2X/DAY
     Route: 048
     Dates: start: 19890101

REACTIONS (1)
  - ABDOMINAL PAIN [None]
